FAERS Safety Report 25264644 (Version 1)
Quarter: 2025Q2

REPORT INFORMATION
  Report Type: Spontaneous
  Country: US (occurrence: None)
  Receive Date: 20250502
  Receipt Date: 20250502
  Transmission Date: 20250717
  Serious: Yes (Death)
  Sender: FDA-CTU
  Company Number: None

PATIENT
  Age: 74 Year
  Sex: Male
  Weight: 86.18 kg

DRUGS (11)
  1. CYCLOSPORINE [Suspect]
     Active Substance: CYCLOSPORINE
     Indication: Lung transplant
     Dosage: FREQUENCY : TWICE A DAY;?
     Route: 048
     Dates: start: 20241219, end: 20250502
  2. ATORVASTATIN [Concomitant]
     Active Substance: ATORVASTATIN
  3. ALPRAZOLAM [Concomitant]
     Active Substance: ALPRAZOLAM
  4. CYCLOBENZAPRINE [Concomitant]
     Active Substance: CYCLOBENZAPRINE
  5. CYCLOSPORINE [Concomitant]
     Active Substance: CYCLOSPORINE
  6. FOLIC ACID [Concomitant]
     Active Substance: FOLIC ACID
  7. FUROSEMIDE [Concomitant]
     Active Substance: FUROSEMIDE
  8. Isosorbide Mononotrate [Concomitant]
  9. MAGNESIUM OXIDE [Concomitant]
     Active Substance: MAGNESIUM OXIDE
  10. VITAMINS [Concomitant]
     Active Substance: VITAMINS
  11. PANTOPRAZOLE [Concomitant]
     Active Substance: PANTOPRAZOLE

REACTIONS (1)
  - Death [None]

NARRATIVE: CASE EVENT DATE: 20250502
